FAERS Safety Report 16694572 (Version 1)
Quarter: 2019Q3

REPORT INFORMATION
  Report Type: Spontaneous
  Country: FR (occurrence: FR)
  Receive Date: 20190812
  Receipt Date: 20190812
  Transmission Date: 20191004
  Serious: Yes (Other)
  Sender: FDA-Public Use
  Company Number: FR-MYLANLABS-2019M1074555

PATIENT
  Age: 38 Year
  Sex: Female

DRUGS (2)
  1. LEVETIRACETAM MYLAN PHARMA 250 MG, COMPRIM? PELLICUL? [Suspect]
     Active Substance: LEVETIRACETAM
     Indication: SEIZURE PROPHYLAXIS
     Dosage: 1 DOSAGE FORM
     Route: 048
     Dates: start: 20180428, end: 20180515
  2. LEVETIRACETAM MYLAN PHARMA 500 MG, COMPRIM? PELLICUL? [Suspect]
     Active Substance: LEVETIRACETAM
     Indication: SEIZURE PROPHYLAXIS
     Dosage: 2 DOSAGE FORM, QD
     Route: 048
     Dates: start: 20180411, end: 20180427

REACTIONS (5)
  - Dysarthria [Not Recovered/Not Resolved]
  - Depression [Not Recovered/Not Resolved]
  - Diffuse alopecia [Not Recovered/Not Resolved]
  - Asthenia [Not Recovered/Not Resolved]
  - Anxiety [Not Recovered/Not Resolved]

NARRATIVE: CASE EVENT DATE: 201804
